FAERS Safety Report 6099032-X (Version None)
Quarter: 2009Q1

REPORT INFORMATION
  Report Type: 
  Country: None (occurrence: None)
  Receive Date: 20090302
  Receipt Date: 20090218
  Transmission Date: 20090719
  Serious: Yes (Hospitalization)
  Sender: FDA-Public Use
  Company Number: DK-PFIZER INC-2009175905

PATIENT

DRUGS (3)
  1. ZOLOFT [Interacting]
     Dosage: 100 MG, UNK
     Route: 048
  2. DESORELLE [Interacting]
     Indication: CONTRACEPTION
     Dosage: UNK
     Route: 048
     Dates: end: 20090204
  3. LAMICTAL [Suspect]
     Route: 048

REACTIONS (3)
  - DRUG INEFFECTIVE [None]
  - DRUG INTERACTION [None]
  - UNINTENDED PREGNANCY [None]
